FAERS Safety Report 8049701-7 (Version None)
Quarter: 2012Q1

REPORT INFORMATION
  Report Type: 
  Country: None (occurrence: None)
  Receive Date: 20120117
  Receipt Date: 20120112
  Transmission Date: 20120608
  Serious: Yes (Hospitalization)
  Sender: FDA-Public Use
  Company Number: US-GLAXOSMITHKLINE-B0732149A

PATIENT
  Age: 75 Year
  Sex: Female
  Weight: 57.7 kg

DRUGS (1)
  1. AVANDIA [Suspect]
     Indication: DIABETES MELLITUS
     Dosage: 4MG TWICE PER DAY
     Route: 048
     Dates: start: 20040901, end: 20070901

REACTIONS (2)
  - CEREBROVASCULAR ACCIDENT [None]
  - THROMBOTIC CEREBRAL INFARCTION [None]
